FAERS Safety Report 20131714 (Version 1)
Quarter: 2021Q4

REPORT INFORMATION
  Report Type: Spontaneous
  Country: GB (occurrence: GB)
  Receive Date: 20211130
  Receipt Date: 20211130
  Transmission Date: 20220304
  Serious: Yes (Hospitalization, Other)
  Sender: FDA-Public Use
  Company Number: None

PATIENT
  Age: 83 Year
  Sex: Male

DRUGS (5)
  1. FEBUXOSTAT [Suspect]
     Active Substance: FEBUXOSTAT
     Indication: Gout
     Dosage: 80 MILLIGRAM, QD (ONE TO BE TAKEN EACH DAY - PT STATES HAS BEEN TAKING FOR SOME YEARS FOR GOUT)
     Dates: start: 20210527
  2. NITROFURANTOIN [Concomitant]
     Active Substance: NITROFURANTOIN
     Dosage: 100 MILLIGRAM, BID (ONE TO BE TAKEN TWICE A DAY 14 CAPSULE )
     Dates: start: 20210608
  3. HYDROCORTISONE                     /00028602/ [Concomitant]
     Dosage: APPLY THIN LAYER FOR ECZEMA FLARE UPS - TWICE DAILY FOR MAX 1 WEEK ONLY 15 GRAM - STOPPED USING
     Dates: start: 20210427
  4. LORATADINE 1A PHARMA [Concomitant]
     Dosage: 10 MILLIGRAM, QD (ONE TO BE TAKEN EACH DAY 30 TABLET - STOPPED TAKING)
     Dates: start: 20210427
  5. COVID-19 VACCINE NOS [Concomitant]
     Active Substance: COVID-19 VACCINE NOS
     Dosage: UNK, 5X10,000,000,000 VIRAL PARTICLES/0.5ML DOSE SOLUTION FOR INJECTION MULTIDOSE VIALS
     Route: 030

REACTIONS (3)
  - Jaundice [Unknown]
  - Pancreatic carcinoma [Unknown]
  - Liver function test abnormal [Unknown]
